FAERS Safety Report 6940325-9 (Version None)
Quarter: 2010Q3

REPORT INFORMATION
  Report Type: 
  Country: None (occurrence: None)
  Receive Date: 20100825
  Receipt Date: 20100817
  Transmission Date: 20110219
  Serious: Yes (Death)
  Sender: FDA-Public Use
  Company Number: GB-BRISTOL-MYERS SQUIBB COMPANY-15243827

PATIENT
  Age: 81 Year
  Sex: Female

DRUGS (9)
  1. CYCLOPHOSPHAMIDE [Suspect]
  2. ETOPOSIDE [Suspect]
  3. BLEOMYCIN SULFATE [Suspect]
  4. VINCRISTINE SULFATE [Suspect]
  5. MITOXANTRONE [Suspect]
     Indication: NON-HODGKIN'S LYMPHOMA
  6. RITUXIMAB [Suspect]
  7. ALLOPURINOL [Concomitant]
  8. ONDANSETRON [Concomitant]
  9. PREDNISOLONE [Concomitant]

REACTIONS (2)
  - CARDIOMYOPATHY [None]
  - IDIOSYNCRATIC DRUG REACTION [None]
